FAERS Safety Report 4277701-1 (Version None)
Quarter: 2004Q1

REPORT INFORMATION
  Report Type: 
  Country: None (occurrence: None)
  Receive Date: 20040121
  Receipt Date: 20040105
  Transmission Date: 20041129
  Serious: Yes (Death)
  Sender: FDA-Public Use
  Company Number: 8004849

PATIENT
  Age: 75 Year
  Sex: Male
  Weight: 71.5 kg

DRUGS (13)
  1. KEPPRA [Suspect]
     Indication: EPILEPSY
     Dosage: 250 MG 2/D PO
     Route: 048
     Dates: start: 20031118, end: 20031119
  2. PHENYTOIN [Concomitant]
  3. SIMVASTATIN [Concomitant]
  4. GLYTRIN [Concomitant]
  5. ASPIRIN [Concomitant]
  6. BETNOVATE [Concomitant]
  7. HYPURIN ISOPHANE [Concomitant]
  8. BETNESOL [Concomitant]
  9. ADIZEM - SLOW RELEASE [Concomitant]
  10. DIPROBASE [Concomitant]
  11. EUMOVATE [Concomitant]
  12. GLUCAGEN HYPOKIT [Concomitant]
  13. RAMIPRIL [Concomitant]

REACTIONS (1)
  - HAEMORRHAGIC STROKE [None]
